FAERS Safety Report 9474776 (Version 2)
Quarter: 2013Q3

REPORT INFORMATION
  Report Type: Spontaneous
  Country: US (occurrence: US)
  Receive Date: 20130823
  Receipt Date: 20130904
  Transmission Date: 20140515
  Serious: Yes (Hospitalization)
  Sender: FDA-Public Use
  Company Number: US-BAXTER-2013BAX032541

PATIENT
  Age: 42 Year
  Sex: Female
  Weight: 100 kg

DRUGS (9)
  1. GAMMAGARD LIQUID [Suspect]
     Indication: CHRONIC INFLAMMATORY DEMYELINATING POLYRADICULONEUROPATHY
     Route: 042
     Dates: start: 201306
  2. GAMMAGARD LIQUID [Suspect]
     Indication: OFF LABEL USE
     Route: 042
     Dates: start: 201302, end: 201305
  3. GAMMAGARD LIQUID [Suspect]
     Indication: CONDITION AGGRAVATED
     Route: 042
     Dates: start: 201301, end: 201302
  4. GAMMAGARD LIQUID [Suspect]
     Route: 042
     Dates: start: 201211, end: 201212
  5. GAMMAGARD LIQUID [Suspect]
     Route: 042
     Dates: start: 201210, end: 201210
  6. HIZENTRA [Suspect]
     Indication: CHRONIC INFLAMMATORY DEMYELINATING POLYRADICULONEUROPATHY
     Route: 058
     Dates: start: 201305, end: 201306
  7. LEXAPRO [Concomitant]
     Indication: PRODUCT USED FOR UNKNOWN INDICATION
     Route: 048
  8. LORAZEPAM [Concomitant]
     Indication: ANXIETY
     Route: 048
  9. SULFUR [Concomitant]
     Indication: PRODUCT USED FOR UNKNOWN INDICATION
     Route: 048

REACTIONS (7)
  - Headache [Recovering/Resolving]
  - Musculoskeletal stiffness [Recovered/Resolved]
  - Vomiting [Recovered/Resolved]
  - Meningitis aseptic [Recovered/Resolved]
  - Migraine [Recovered/Resolved]
  - Visual impairment [Recovered/Resolved]
  - Condition aggravated [Recovering/Resolving]
